FAERS Safety Report 4564307-X (Version None)
Quarter: 2005Q1

REPORT INFORMATION
  Report Type: 
  Country: None (occurrence: None)
  Receive Date: 20050128
  Receipt Date: 20050121
  Transmission Date: 20050727
  Serious: Yes (Hospitalization)
  Sender: FDA-Public Use
  Company Number: CH-MERCK-0501CHE00026

PATIENT
  Age: 74 Year
  Sex: Male
  Weight: 78 kg

DRUGS (5)
  1. VIOXX [Suspect]
     Indication: OSTEOARTHRITIS
     Route: 048
     Dates: start: 20030601, end: 20040601
  2. ATORVASTATIN CALCIUM [Concomitant]
     Indication: HYPERLIPIDAEMIA
     Route: 048
  3. BENSERAZIDE HYDROCHLORIDE AND LEVODOPA [Concomitant]
     Route: 048
  4. GABAPENTIN [Concomitant]
     Route: 048
  5. DARBEPOETIN ALFA [Concomitant]
     Route: 058

REACTIONS (4)
  - ANGIOPATHY [None]
  - CARDIAC FAILURE [None]
  - MYOCARDIAL INFARCTION [None]
  - OEDEMA [None]
